FAERS Safety Report 6948561-2 (Version None)
Quarter: 2010Q3

REPORT INFORMATION
  Report Type: 
  Country: None (occurrence: None)
  Receive Date: 20100828
  Receipt Date: 20091112
  Transmission Date: 20110219
  Serious: No
  Sender: FDA-Public Use
  Company Number: US-ABBOTT-09P-163-0609369-00

PATIENT
  Sex: Male
  Weight: 126.21 kg

DRUGS (7)
  1. NIASPAN [Suspect]
     Indication: BLOOD CHOLESTEROL INCREASED
     Route: 048
     Dates: start: 20090501
  2. NIASPAN [Suspect]
     Route: 048
  3. NIASPAN [Suspect]
     Dosage: 500MG + 750MG
     Route: 048
  4. NIASPAN [Suspect]
     Route: 048
  5. CRESTOR [Concomitant]
     Indication: BLOOD CHOLESTEROL INCREASED
  6. ASPIRIN [Concomitant]
     Indication: PROPHYLAXIS
     Route: 048
  7. ASPIRIN UNCOATED [Concomitant]
     Indication: PROPHYLAXIS
     Route: 048
     Dates: start: 20090801

REACTIONS (1)
  - FEELING HOT [None]
